FAERS Safety Report 8293462-3 (Version None)
Quarter: 2012Q2

REPORT INFORMATION
  Report Type: 
  Country: None (occurrence: None)
  Receive Date: 20120417
  Receipt Date: 20120412
  Transmission Date: 20120825
  Serious: Yes (Hospitalization, Disabling)
  Sender: FDA-Public Use
  Company Number: US-MERCK-1110USA02432

PATIENT
  Age: 47 Year
  Sex: Female

DRUGS (4)
  1. FOSAMAX [Suspect]
     Indication: OSTEOPENIA
     Route: 048
     Dates: start: 19970101, end: 20000101
  2. BONIVA [Suspect]
     Indication: OSTEOPENIA
     Route: 065
     Dates: start: 20060101, end: 20090701
  3. ALENDRONATE SODIUM [Suspect]
     Indication: OSTEOPENIA
     Route: 065
     Dates: start: 20090101, end: 20100201
  4. FOSAMAX [Suspect]
     Route: 048
     Dates: start: 20000101, end: 20061001

REACTIONS (12)
  - DIZZINESS [None]
  - MENISCUS LESION [None]
  - FOOT FRACTURE [None]
  - HAND FRACTURE [None]
  - HYPERPARATHYROIDISM [None]
  - WRIST FRACTURE [None]
  - COELIAC DISEASE [None]
  - OSTEONECROSIS OF JAW [None]
  - ATTENTION DEFICIT/HYPERACTIVITY DISORDER [None]
  - GINGIVAL DISORDER [None]
  - TOOTH DISORDER [None]
  - CHEST DISCOMFORT [None]
